FAERS Safety Report 23260948 (Version 1)
Quarter: 2023Q4

REPORT INFORMATION
  Report Type: Spontaneous
  Country: US (occurrence: US)
  Receive Date: 20231205
  Receipt Date: 20231205
  Transmission Date: 20240110
  Serious: Yes (Other)
  Sender: FDA-Public Use
  Company Number: US-BoehringerIngelheim-2023-BI-275315

PATIENT
  Sex: Male

DRUGS (1)
  1. JARDIANCE [Suspect]
     Active Substance: EMPAGLIFLOZIN
     Indication: Product used for unknown indication

REACTIONS (6)
  - Glaucoma [Unknown]
  - Hepatic cirrhosis [Unknown]
  - Urticaria [Unknown]
  - Dyspnoea [Unknown]
  - Hypertension [Unknown]
  - Heart rate irregular [Unknown]
